FAERS Safety Report 20796212 (Version 1)
Quarter: 2022Q2

REPORT INFORMATION
  Report Type: Report from Study
  Country: US (occurrence: US)
  Receive Date: 20220506
  Receipt Date: 20220506
  Transmission Date: 20220721
  Serious: Yes (Other)
  Sender: FDA-Public Use
  Company Number: US-UCBSA-2022024524

PATIENT
  Age: 53 Year
  Sex: Female

DRUGS (2)
  1. LACOSAMIDE [Suspect]
     Active Substance: LACOSAMIDE
     Indication: Seizure
     Dosage: 150MG IN AM AND 200MG AT PM
  2. KEPPRA [Suspect]
     Active Substance: LEVETIRACETAM
     Indication: Product used for unknown indication
     Dosage: 2 KEPPRA IN MORNING AND 2 IN THE EVENING

REACTIONS (6)
  - Aneurysm [Not Recovered/Not Resolved]
  - Weight increased [Not Recovered/Not Resolved]
  - Illness [Not Recovered/Not Resolved]
  - Amnesia [Not Recovered/Not Resolved]
  - COVID-19 [Not Recovered/Not Resolved]
  - Product use issue [Unknown]

NARRATIVE: CASE EVENT DATE: 20201201
